FAERS Safety Report 7022872-7 (Version None)
Quarter: 2010Q3

REPORT INFORMATION
  Report Type: 
  Country: None (occurrence: None)
  Receive Date: 20100930
  Receipt Date: 20100928
  Transmission Date: 20110219
  Serious: Yes (Death)
  Sender: FDA-Public Use
  Company Number: JP-SANOFI-AVENTIS-2010SA057909

PATIENT
  Sex: Male

DRUGS (1)
  1. TAXOTERE [Suspect]
     Indication: NEOPLASM MALIGNANT
     Dates: start: 20100501, end: 20100730

REACTIONS (1)
  - INTERSTITIAL LUNG DISEASE [None]
